FAERS Safety Report 20652476 (Version 1)
Quarter: 2022Q1

REPORT INFORMATION
  Report Type: Spontaneous
  Country: US (occurrence: US)
  Receive Date: 20220330
  Receipt Date: 20220330
  Transmission Date: 20220423
  Serious: No
  Sender: FDA-Public Use
  Company Number: US-BAYER-2022A043070

PATIENT
  Sex: Male

DRUGS (2)
  1. CLARITIN [Suspect]
     Active Substance: LORATADINE
     Indication: Multiple allergies
     Dosage: 2 DF, QD
     Route: 065
  2. CLARITIN [Suspect]
     Active Substance: LORATADINE
     Dosage: UNK UNK, QID
     Route: 065

REACTIONS (1)
  - Incorrect dose administered [Unknown]
